FAERS Safety Report 14480191 (Version 2)
Quarter: 2018Q1

REPORT INFORMATION
  Report Type: Spontaneous
  Country: DE (occurrence: DE)
  Receive Date: 20180202
  Receipt Date: 20180213
  Transmission Date: 20180509
  Serious: Yes (Hospitalization)
  Sender: FDA-Public Use
  Company Number: DE-DRREDDYS-GER/GER/18/0096068

PATIENT
  Age: 2 Year
  Sex: Male
  Weight: 13.7 kg

DRUGS (5)
  1. SIMVABETA [Suspect]
     Active Substance: SIMVASTATIN
     Indication: PRODUCT USED FOR UNKNOWN INDICATION
     Route: 048
     Dates: start: 20180122, end: 20180122
  2. ASA 100 [Suspect]
     Active Substance: ASPIRIN
     Indication: PRODUCT USED FOR UNKNOWN INDICATION
     Route: 048
     Dates: start: 20180122, end: 20180122
  3. HCT 25 [Suspect]
     Active Substance: HYDROCHLOROTHIAZIDE
     Indication: PRODUCT USED FOR UNKNOWN INDICATION
     Route: 048
     Dates: start: 20180122, end: 20180122
  4. RAMIPRIL 10 [Suspect]
     Active Substance: RAMIPRIL
     Indication: PRODUCT USED FOR UNKNOWN INDICATION
     Route: 048
     Dates: start: 20180122, end: 20180122
  5. BISOPROLOL 5 [Suspect]
     Active Substance: BISOPROLOL
     Indication: PRODUCT USED FOR UNKNOWN INDICATION
     Route: 048
     Dates: start: 20180122, end: 20180122

REACTIONS (6)
  - Accidental exposure to product by child [Unknown]
  - Blood creatine phosphokinase increased [None]
  - No adverse event [Unknown]
  - Blood creatine phosphokinase MB increased [None]
  - Blood calcium decreased [None]
  - Blood chloride decreased [None]

NARRATIVE: CASE EVENT DATE: 20180122
